FAERS Safety Report 4892061-0 (Version None)
Quarter: 2006Q1

REPORT INFORMATION
  Report Type: 
  Country: None (occurrence: None)
  Receive Date: 20060126
  Receipt Date: 20051018
  Transmission Date: 20060701
  Serious: Yes (Hospitalization)
  Sender: FDA-Public Use
  Company Number: 2005UW15624

PATIENT
  Age: 57 Year
  Sex: Male

DRUGS (4)
  1. CRESTOR [Suspect]
     Indication: DYSLIPIDAEMIA
     Route: 048
     Dates: start: 20050321
  2. ASPIRIN [Concomitant]
  3. GLUCOPHAGE [Concomitant]
  4. HYZAAR [Concomitant]
     Dosage: 50/12.5

REACTIONS (5)
  - DERMATITIS BULLOUS [None]
  - FOLLICULITIS [None]
  - PURPURA [None]
  - PYREXIA [None]
  - RASH PUSTULAR [None]
